FAERS Safety Report 9500450 (Version 1)
Quarter: 2013Q3

REPORT INFORMATION
  Report Type: Spontaneous
  Country: ES (occurrence: ES)
  Receive Date: 20130905
  Receipt Date: 20130905
  Transmission Date: 20140515
  Serious: Yes (Other)
  Sender: FDA-Public Use
  Company Number: ES-MYLANLABS-2013S1019166

PATIENT
  Age: 66 Year
  Sex: Female

DRUGS (6)
  1. RASAGILINE [Suspect]
     Indication: PARKINSON^S DISEASE
     Dosage: 1 MG/DAY
     Route: 065
  2. STALEVO [Suspect]
     Indication: PARKINSON^S DISEASE
     Dosage: 2 X 150 TABLETS/DAY
     Route: 065
  3. STALEVO [Suspect]
     Indication: PARKINSON^S DISEASE
     Dosage: 4 X 200 TABLETS/DAY
     Route: 065
  4. CARBIDOPA + LEVODOPA [Suspect]
     Indication: PARKINSON^S DISEASE
     Dosage: TABLET AT NIGHT
     Route: 065
  5. AMANTADINE [Suspect]
     Indication: PARKINSON^S DISEASE
     Dosage: 2 X 100MG TABLETS/DAY
     Route: 065
  6. DULOXETINE [Suspect]
     Indication: DEPRESSION
     Dosage: 90 MG/DAY
     Route: 065

REACTIONS (1)
  - Serotonin syndrome [Recovering/Resolving]
